FAERS Safety Report 18467672 (Version 2)
Quarter: 2020Q4

REPORT INFORMATION
  Report Type: Spontaneous
  Country: GB (occurrence: US)
  Receive Date: 20201105
  Receipt Date: 20201111
  Transmission Date: 20210114
  Serious: Yes (Other)
  Sender: FDA-Public Use
  Company Number: GB-PFIZER INC-2020424033

PATIENT
  Age: 65 Year
  Sex: Male

DRUGS (3)
  1. NARDIL [Suspect]
     Active Substance: PHENELZINE SULFATE
     Dosage: UNK (DAILY DOSE OF 85 WHICH WAS FOLLOWED IN THE EMAIL BY HALF A MILLIGRAM, EVERY DAY)
  2. NARDIL [Suspect]
     Active Substance: PHENELZINE SULFATE
     Dosage: UNK (50 MG TO EVERY 3-4 DAYS)
  3. PHENELZINE SULFATE. [Suspect]
     Active Substance: PHENELZINE SULFATE
     Dosage: UNK, DAILY (EVERY 3-4 DAYS AND I WAS ON A DAILY DOSE OF 85 1/2MG EVERYDAY)

REACTIONS (8)
  - Agitation [Unknown]
  - Suicidal ideation [Unknown]
  - Headache [Unknown]
  - Depression [Unknown]
  - Decreased appetite [Unknown]
  - Feeling cold [Unknown]
  - Abdominal pain upper [Unknown]
  - Insomnia [Unknown]
